FAERS Safety Report 5849456-8 (Version None)
Quarter: 2008Q3

REPORT INFORMATION
  Report Type: 
  Country: None (occurrence: None)
  Receive Date: 20080815
  Receipt Date: 20080731
  Transmission Date: 20090109
  Serious: Yes (Hospitalization)
  Sender: FDA-Public Use
  Company Number: 100#08#2008-03858

PATIENT
  Age: 9 Year
  Sex: Male

DRUGS (9)
  1. CARBOPLATIN [Suspect]
     Indication: BRAIN NEOPLASM
  2. CISPLATIN [Suspect]
  3. VINCRISTINE [Suspect]
     Indication: BRAIN NEOPLASM
  4. ETOPOSIDE [Suspect]
     Indication: BRAIN NEOPLASM
  5. ANTIBIOTICS (ANTIBIOTICS) [Concomitant]
  6. ANTIBIOTICS (ANTIBIOTICS) [Concomitant]
  7. VALPROIC ACID [Concomitant]
  8. TOPIRAMATE [Concomitant]
  9. CLONAZEPAM [Concomitant]

REACTIONS (2)
  - COLONIC PSEUDO-OBSTRUCTION [None]
  - PANCYTOPENIA [None]
